FAERS Safety Report 8447200-1 (Version None)
Quarter: 2012Q2

REPORT INFORMATION
  Report Type: 
  Country: None (occurrence: None)
  Receive Date: 20120619
  Receipt Date: 20120613
  Transmission Date: 20120825
  Serious: No
  Sender: FDA-Public Use
  Company Number: US-PFIZER INC-2012143158

PATIENT
  Sex: Male
  Weight: 90.703 kg

DRUGS (3)
  1. ADVIL PM [Suspect]
     Indication: SUNBURN
     Dosage: TWO TABLETS, UNK
     Route: 048
     Dates: start: 20120611, end: 20120611
  2. ADVIL PM [Suspect]
     Indication: PAIN
  3. ADVIL PM [Suspect]
     Indication: INSOMNIA

REACTIONS (2)
  - EXPIRED DRUG ADMINISTERED [None]
  - DRUG INEFFECTIVE [None]
